FAERS Safety Report 22276926 (Version 2)
Quarter: 2023Q2

REPORT INFORMATION
  Report Type: Spontaneous
  Country: US (occurrence: US)
  Receive Date: 20230503
  Receipt Date: 20230619
  Transmission Date: 20230722
  Serious: No
  Sender: FDA-Public Use
  Company Number: US-SA-SAC20230427001405

PATIENT
  Sex: Male

DRUGS (1)
  1. DUPIXENT [Suspect]
     Active Substance: DUPILUMAB
     Dosage: 300 MG OTHER
     Route: 058

REACTIONS (3)
  - Condition aggravated [Unknown]
  - Inappropriate schedule of product administration [Unknown]
  - Ocular discomfort [Unknown]
